FAERS Safety Report 10917686 (Version 2)
Quarter: 2015Q3

REPORT INFORMATION
  Report Type: Spontaneous
  Country: US (occurrence: US)
  Receive Date: 20150316
  Receipt Date: 20150818
  Transmission Date: 20151125
  Serious: No
  Sender: FDA-Public Use
  Company Number: US-GLAXOSMITHKLINE-US2015GSK013978

PATIENT
  Age: 65 Year
  Sex: Female

DRUGS (11)
  1. CYMBALTA [Suspect]
     Active Substance: DULOXETINE HYDROCHLORIDE
     Indication: DEPRESSION
     Dosage: UNK, U
     Route: 065
     Dates: start: 2014, end: 2014
  2. WELLBUTRIN [Suspect]
     Active Substance: BUPROPION HYDROCHLORIDE
     Indication: DEPRESSION
     Dosage: 3 DF, QD
     Route: 065
     Dates: start: 201407, end: 2014
  3. WELLBUTRIN [Suspect]
     Active Substance: BUPROPION HYDROCHLORIDE
     Dosage: UNK UNK, Z
     Route: 065
     Dates: start: 2014, end: 2014
  4. HUMIRA [Suspect]
     Active Substance: ADALIMUMAB
     Indication: RHEUMATOID ARTHRITIS
     Dosage: 40 MG, EVERY TWO WEEKS
     Route: 042
     Dates: start: 20140803, end: 2014
  5. HUMIRA [Suspect]
     Active Substance: ADALIMUMAB
     Dosage: 40 MG, EVERY TWO WEEKS
     Route: 042
     Dates: start: 20141116
  6. METHOTREXATE [Concomitant]
     Active Substance: METHOTREXATE
  7. PREDNISOLONE. [Concomitant]
     Active Substance: PREDNISOLONE
  8. BUTALBITAL + CAFFEINE + PARACETAMOL [Concomitant]
  9. TRAMADOL. [Concomitant]
     Active Substance: TRAMADOL
  10. PROZAC [Concomitant]
     Active Substance: FLUOXETINE HYDROCHLORIDE
  11. CYMBALTA [Suspect]
     Active Substance: DULOXETINE HYDROCHLORIDE
     Indication: ANXIETY

REACTIONS (30)
  - Spinal osteoarthritis [Not Recovered/Not Resolved]
  - Feeling abnormal [Unknown]
  - Weight decreased [Unknown]
  - Ligament sprain [Unknown]
  - Musculoskeletal stiffness [Unknown]
  - Increased upper airway secretion [Unknown]
  - Drug dose omission [Recovered/Resolved]
  - Decreased appetite [Unknown]
  - Fear [Unknown]
  - Oropharyngeal pain [Unknown]
  - Dysphagia [Unknown]
  - Injection site pain [Recovered/Resolved]
  - Upper-airway cough syndrome [Unknown]
  - Cough [Unknown]
  - Headache [Unknown]
  - Hypertension [Recovered/Resolved]
  - Nausea [Unknown]
  - Drug ineffective [Unknown]
  - Memory impairment [Unknown]
  - Pharyngeal exudate [Unknown]
  - Anxiety [Not Recovered/Not Resolved]
  - Pharyngeal erythema [Unknown]
  - Contusion [Unknown]
  - Hepatic enzyme increased [Not Recovered/Not Resolved]
  - Mobility decreased [Unknown]
  - Animal scratch [Unknown]
  - Peripheral coldness [Unknown]
  - Throat irritation [Unknown]
  - Spinal pain [Not Recovered/Not Resolved]
  - Arthropathy [Unknown]

NARRATIVE: CASE EVENT DATE: 2014
